FAERS Safety Report 5274949-4 (Version None)
Quarter: 2007Q1

REPORT INFORMATION
  Report Type: 
  Country: None (occurrence: None)
  Receive Date: 20061207
  Receipt Date: 20060814
  Transmission Date: 20070707
  Serious: No
  Sender: FDA-Public Use
  Company Number: 36675

PATIENT
  Sex: Female

DRUGS (1)
  1. NEVANAC [Suspect]
     Indication: PROPHYLAXIS

REACTIONS (2)
  - EYE PAIN [None]
  - VISUAL ACUITY REDUCED [None]
